FAERS Safety Report 17981495 (Version 2)
Quarter: 2025Q3

REPORT INFORMATION
  Report Type: Report from Study
  Country: EU (occurrence: EU)
  Receive Date: 20200706
  Receipt Date: 20250704
  Transmission Date: 20251021
  Serious: Yes (Other)
  Sender: AUROBINDO
  Company Number: EU-LSSRM-2020-IT-1790129

PATIENT
  Sex: Female

DRUGS (3)
  1. RIBAVIRIN [Suspect]
     Active Substance: RIBAVIRIN
     Indication: HIV infection
     Route: 065
  2. DACLATASVIR [Suspect]
     Active Substance: DACLATASVIR
     Indication: HIV infection
     Route: 065
  3. SIMEPREVIR [Suspect]
     Active Substance: SIMEPREVIR
     Indication: HIV infection
     Route: 065

REACTIONS (3)
  - Viral infection [Unknown]
  - Pathogen resistance [Unknown]
  - Infection [Unknown]
